FAERS Safety Report 5750267-2 (Version None)
Quarter: 2008Q2

REPORT INFORMATION
  Report Type: 
  Country: None (occurrence: None)
  Receive Date: 20080522
  Receipt Date: 20080522
  Transmission Date: 20081010
  Serious: Yes (Life-Threatening, Hospitalization)
  Sender: FDA-Public Use
  Company Number: None

PATIENT
  Sex: Female
  Weight: 57.6068 kg

DRUGS (1)
  1. DIGETEK [Suspect]
     Indication: ARRHYTHMIA
     Dosage: 0.125 MG 1 DAILY BUT MG WAS DOUBLED BY MFG.
     Dates: start: 20071201, end: 20080401

REACTIONS (1)
  - PHARMACEUTICAL PRODUCT COMPLAINT [None]
